FAERS Safety Report 5281310-5 (Version None)
Quarter: 2007Q1

REPORT INFORMATION
  Report Type: 
  Country: None (occurrence: None)
  Receive Date: 20061221
  Receipt Date: 20061106
  Transmission Date: 20070707
  Serious: Yes (Other)
  Sender: FDA-Public Use
  Company Number: PHEH2006US13791

PATIENT
  Age: 5 Year
  Sex: Male
  Weight: 22.7 kg

DRUGS (3)
  1. FOCALIN XR [Suspect]
     Indication: ATTENTION DEFICIT/HYPERACTIVITY DISORDER
     Dosage: 40 MG DAILY IN THE A.M., ORAL
     Route: 048
     Dates: start: 20050728, end: 20050809
  2. GUANFACINE HCL [Concomitant]
  3. ABILIFY [Concomitant]

REACTIONS (1)
  - TACHYCARDIA [None]
